FAERS Safety Report 13147666 (Version 2)
Quarter: 2017Q1

REPORT INFORMATION
  Report Type: Report from Study
  Country: US (occurrence: US)
  Receive Date: 20170124
  Receipt Date: 20170124
  Transmission Date: 20170428
  Serious: No
  Sender: FDA-Public Use
  Company Number: US-AMGEN-USASL2016166797

PATIENT
  Age: 78 Year
  Sex: Female

DRUGS (1)
  1. REPATHA [Suspect]
     Active Substance: EVOLOCUMAB
     Indication: PRODUCT USED FOR UNKNOWN INDICATION
     Dosage: UNK (PUSHTRONEX)
     Route: 065

REACTIONS (3)
  - Underdose [Unknown]
  - Injection site mass [Unknown]
  - Injection site induration [Unknown]

NARRATIVE: CASE EVENT DATE: 20161123
